FAERS Safety Report 6413093-7 (Version None)
Quarter: 2009Q4

REPORT INFORMATION
  Report Type: 
  Country: None (occurrence: None)
  Receive Date: 20091022
  Receipt Date: 20091022
  Transmission Date: 20100525
  Serious: Yes (Other)
  Sender: FDA-Public Use
  Company Number: None

PATIENT
  Age: 32 Year
  Sex: Male
  Weight: 83.9154 kg

DRUGS (2)
  1. SEROQUEL [Suspect]
     Indication: DEPRESSION
     Dosage: 600MG ONCE AT BEDTIME PO
     Route: 048
     Dates: start: 20060522, end: 20080922
  2. SEROQUEL [Suspect]
     Indication: INSOMNIA
     Dosage: 600MG ONCE AT BEDTIME PO
     Route: 048
     Dates: start: 20060522, end: 20080922

REACTIONS (1)
  - WEIGHT INCREASED [None]
